FAERS Safety Report 8277165-7 (Version None)
Quarter: 2012Q2

REPORT INFORMATION
  Report Type: 
  Country: None (occurrence: None)
  Receive Date: 20120412
  Receipt Date: 20120403
  Transmission Date: 20120825
  Serious: Yes (Other)
  Sender: FDA-Public Use
  Company Number: CA-ASTRAZENECA-2012SE21553

PATIENT
  Sex: Male

DRUGS (2)
  1. ALBUTEROL [Concomitant]
     Indication: ASTHMA
     Dosage: AS NEEDED
  2. SYMBICORT [Suspect]
     Indication: ASTHMA
     Dosage: 200, 2 PUFFS TWO TIMES A DAY
     Route: 055
     Dates: start: 20080101

REACTIONS (4)
  - ASTHMA [None]
  - CHEST DISCOMFORT [None]
  - DYSPNOEA [None]
  - DRUG INEFFECTIVE [None]
